FAERS Safety Report 20584548 (Version 3)
Quarter: 2022Q2

REPORT INFORMATION
  Report Type: Spontaneous
  Country: JP (occurrence: JP)
  Receive Date: 20220311
  Receipt Date: 20220623
  Transmission Date: 20220720
  Serious: Yes (Hospitalization, Other)
  Sender: FDA-Public Use
  Company Number: JP-JAZZ-2022-JP-006453

PATIENT
  Age: 37 Year
  Sex: Male
  Weight: 52.1 kg

DRUGS (1)
  1. DEFITELIO [Suspect]
     Active Substance: DEFIBROTIDE SODIUM
     Indication: Venoocclusive liver disease
     Dosage: 25 MG/KG (25 MG/KG/24 HOURS)
     Route: 042
     Dates: start: 20211008, end: 20211025

REACTIONS (3)
  - JC virus infection [Recovering/Resolving]
  - BK virus infection [Recovering/Resolving]
  - Cystitis haemorrhagic [Recovering/Resolving]

NARRATIVE: CASE EVENT DATE: 20211128
